FAERS Safety Report 7069058-8 (Version None)
Quarter: 2010Q4

REPORT INFORMATION
  Report Type: 
  Country: None (occurrence: None)
  Receive Date: 20101028
  Receipt Date: 20101022
  Transmission Date: 20110411
  Serious: Yes (Death, Hospitalization)
  Sender: FDA-Public Use
  Company Number: JP-ELI_LILLY_AND_COMPANY-JP201005007840

PATIENT
  Age: 60 Year
  Sex: Female
  Weight: 48.5 kg

DRUGS (35)
  1. TADALAFIL [Suspect]
     Indication: PULMONARY ARTERIAL HYPERTENSION
     Dosage: 20 MG, DAILY (1/D)
     Route: 048
     Dates: start: 20091228, end: 20100104
  2. TADALAFIL [Suspect]
     Dosage: 20 MG, DAILY (1/D)
     Route: 048
     Dates: start: 20100105
  3. PREDNISOLONE [Concomitant]
     Indication: MIXED CONNECTIVE TISSUE DISEASE
     Dosage: 10 MG, DAILY (1/D)
     Route: 048
  4. ALFAROL [Concomitant]
     Dosage: 1 UG, DAILY (1/D)
     Route: 048
     Dates: end: 20100204
  5. SALOBEL [Concomitant]
     Indication: HYPERURICAEMIA
     Dosage: 100 MG, DAILY (1/D)
     Route: 048
     Dates: end: 20100204
  6. SALOBEL [Concomitant]
     Dosage: 100 MG, DAILY (1/D)
     Route: 048
     Dates: start: 20100222
  7. JUVELA [Concomitant]
     Indication: SKIN ULCER
     Dosage: 600 MG, DAILY (1/D)
     Route: 048
  8. DORNER [Concomitant]
     Indication: SKIN ULCER
     Dosage: 120 MG, DAILY (1/D)
     Route: 048
  9. CIBENOL [Concomitant]
     Indication: HYPERTROPHIC CARDIOMYOPATHY
     Dosage: 100 MG, DAILY (1/D)
     Route: 048
     Dates: start: 20090801
  10. BONALON [Concomitant]
     Dosage: 35 MG, DAILY (1/D)
     Route: 048
  11. WARFARIN SODIUM [Concomitant]
     Indication: PULMONARY ARTERIAL HYPERTENSION
     Dosage: 2 MG, DAILY (1/D)
     Route: 048
     Dates: start: 20091225, end: 20100204
  12. WARFARIN SODIUM [Concomitant]
     Dosage: 2.25 MG, DAILY (1/D)
     Route: 048
     Dates: start: 20100218
  13. PARIET /JPN/ [Concomitant]
     Dosage: 10 MG, DAILY (1/D)
     Route: 048
     Dates: start: 20090801, end: 20100204
  14. PARIET /JPN/ [Concomitant]
     Dosage: 10 MG, DAILY (1/D)
     Route: 048
     Dates: start: 20100209
  15. FERROUS CITRATE [Concomitant]
     Indication: ANAEMIA
     Dosage: 100 MG, DAILY (1/D)
     Route: 048
     Dates: start: 20091211, end: 20100204
  16. FERROUS CITRATE [Concomitant]
     Dosage: 50 MG, DAILY (1/D)
     Route: 048
     Dates: start: 20100209
  17. TRACLEER [Concomitant]
     Indication: PULMONARY ARTERIAL HYPERTENSION
     Dosage: 62.5 MG, 2/D
     Route: 048
     Dates: start: 20091218
  18. HERBESSER R [Concomitant]
     Indication: HYPERTROPHIC CARDIOMYOPATHY
     Dosage: 100 MG, DAILY (1/D)
     Route: 048
     Dates: start: 20091228, end: 20100119
  19. HERBESSER R [Concomitant]
     Dosage: 200 MG, DAILY (1/D)
     Route: 048
     Dates: start: 20100120, end: 20100206
  20. HERBESSER R [Concomitant]
     Dosage: 100 MG, DAILY (1/D)
     Route: 048
     Dates: start: 20100208, end: 20100214
  21. HERBESSER R [Concomitant]
     Dosage: 200 MG, DAILY (1/D)
     Route: 048
     Dates: start: 20100215
  22. DIOVAN [Concomitant]
     Indication: HYPERTENSION
     Dosage: 20 MG, DAILY (1/D)
     Route: 048
     Dates: start: 20100122, end: 20100206
  23. OMEPRAL [Concomitant]
     Dosage: 40 MG, DAILY (1/D)
     Route: 042
     Dates: start: 20100205, end: 20100208
  24. VENOGLOBULIN [Concomitant]
     Indication: PNEUMONIA
     Dosage: 5 G, DAILY (1/D)
     Route: 042
     Dates: start: 20100205, end: 20100206
  25. VENOGLOBULIN [Concomitant]
     Dosage: 2.5 G, DAILY (1/D)
     Route: 042
     Dates: start: 20100207, end: 20100207
  26. HEPARIN SODIUM UNK MANU [Concomitant]
     Dosage: 5000 IU, DAILY (1/D)
     Route: 042
     Dates: start: 20100204, end: 20100204
  27. HEPARIN SODIUM UNK MANU [Concomitant]
     Dosage: 10000 IU, DAILY (1/D)
     Route: 042
     Dates: start: 20100205, end: 20100205
  28. HEPARIN SODIUM UNK MANU [Concomitant]
     Dosage: 5000 IU, DAILY (1/D)
     Route: 042
     Dates: start: 20100206, end: 20100222
  29. ANTHROBIN P [Concomitant]
     Indication: HYPOALBUMINAEMIA
     Dosage: 1000 IU, DAILY (1/D)
     Route: 042
     Dates: start: 20100206, end: 20100208
  30. FESIN [Concomitant]
     Indication: ANAEMIA
     Dosage: 80 MG, DAILY (1/D)
     Route: 042
     Dates: start: 20100206, end: 20100208
  31. ALBUMIN (HUMAN) [Concomitant]
     Indication: HYPOALBUMINAEMIA
     Dosage: 50 ML, DAILY (1/D)
     Route: 042
     Dates: start: 20100205, end: 20100207
  32. ALBUMIN (HUMAN) [Concomitant]
     Dosage: 50 ML, DAILY (1/D)
     Route: 042
     Dates: start: 20100215, end: 20100216
  33. ROCEPHIN [Concomitant]
     Indication: PNEUMONIA
     Dosage: 2 G, DAILY (1/D)
     Route: 042
     Dates: start: 20100105, end: 20100106
  34. ROCEPHIN [Concomitant]
     Dosage: 1 G, DAILY (1/D)
     Route: 042
     Dates: start: 20100107, end: 20100111
  35. MEROPEN [Concomitant]
     Indication: PNEUMONIA
     Dosage: 1 G, DAILY (1/D)
     Route: 042
     Dates: start: 20100205, end: 20100216

REACTIONS (2)
  - CARDIAC FAILURE [None]
  - INFECTION [None]
